FAERS Safety Report 11257558 (Version 3)
Quarter: 2015Q3

REPORT INFORMATION
  Report Type: Spontaneous
  Country: JP (occurrence: JP)
  Receive Date: 20150709
  Receipt Date: 20150917
  Transmission Date: 20151125
  Serious: Yes (Other)
  Sender: FDA-Public Use
  Company Number: PHJP2015JP011219

PATIENT
  Age: 47 Year
  Sex: Male

DRUGS (2)
  1. CLOZARIL [Suspect]
     Active Substance: CLOZAPINE
     Dosage: UNK OT, QD
     Route: 048
     Dates: start: 20150716
  2. CLOZARIL [Suspect]
     Active Substance: CLOZAPINE
     Indication: SCHIZOPHRENIA
     Dosage: 600 MG, QD
     Route: 048
     Dates: start: 20101115, end: 20150629

REACTIONS (8)
  - Vomiting [Unknown]
  - Leukopenia [Unknown]
  - Femur fracture [Recovering/Resolving]
  - Hypophagia [Unknown]
  - Epilepsy [Unknown]
  - Neutropenia [Unknown]
  - Decreased appetite [Unknown]
  - Ileus [Recovering/Resolving]

NARRATIVE: CASE EVENT DATE: 20150622
